FAERS Safety Report 12831526 (Version 3)
Quarter: 2016Q4

REPORT INFORMATION
  Report Type: Report from Study
  Country: BR (occurrence: BR)
  Receive Date: 20161009
  Receipt Date: 20161212
  Transmission Date: 20170207
  Serious: Yes (Other)
  Sender: FDA-Public Use
  Company Number: PHHY2014BR119992

PATIENT
  Age: 66 Year
  Sex: Female
  Weight: 57 kg

DRUGS (6)
  1. METICORTEN [Concomitant]
     Active Substance: PREDNISONE
     Indication: PRODUCT USED FOR UNKNOWN INDICATION
     Route: 065
  2. CALCIUM CARBONATE. [Concomitant]
     Active Substance: CALCIUM CARBONATE
     Indication: BONE DECALCIFICATION
     Dosage: 1 DF, BID (AT LUNCH AND AT DINNER)
     Route: 065
     Dates: start: 1997
  3. SANDOSTATIN LAR DEPOT [Suspect]
     Active Substance: OCTREOTIDE ACETATE
     Indication: ACROMEGALY
     Dosage: 30 MG, QMO (EVERY 28 DAYS)
     Route: 030
     Dates: start: 2000
  4. SANDOSTATIN LAR DEPOT [Suspect]
     Active Substance: OCTREOTIDE ACETATE
     Dosage: 20 MG, EVERY 6 WEEKS
     Route: 030
  5. PURAN [Concomitant]
     Active Substance: LEVOTHYROXINE SODIUM
     Indication: THYROID MASS
     Dosage: 1 DF, QD (DAILY IN THE MORNING)
     Route: 065
     Dates: start: 1995
  6. SIMVASTATIN. [Concomitant]
     Active Substance: SIMVASTATIN
     Indication: PRODUCT USED FOR UNKNOWN INDICATION
     Route: 065

REACTIONS (27)
  - Dizziness [Unknown]
  - Renal mass [Recovering/Resolving]
  - Renal pain [Unknown]
  - Cough [Unknown]
  - Anaemia [Unknown]
  - Decreased appetite [Unknown]
  - Weight decreased [Unknown]
  - Gastrointestinal disorder [Unknown]
  - Memory impairment [Not Recovered/Not Resolved]
  - Speech disorder [Unknown]
  - Chest discomfort [Unknown]
  - Inappropriate schedule of drug administration [Unknown]
  - Chest pain [Recovering/Resolving]
  - Tremor [Unknown]
  - Influenza [Recovered/Resolved]
  - Hyperthyroidism [Unknown]
  - Feeling abnormal [Unknown]
  - Nervousness [Unknown]
  - Dry mouth [Unknown]
  - Fatigue [Unknown]
  - Abdominal distension [Unknown]
  - Malaise [Recovering/Resolving]
  - Blood glucose increased [Unknown]
  - Head discomfort [Unknown]
  - Hypophagia [Unknown]
  - Visual impairment [Unknown]
  - Headache [Recovered/Resolved]

NARRATIVE: CASE EVENT DATE: 20150509
